FAERS Safety Report 24236397 (Version 1)
Quarter: 2024Q3

REPORT INFORMATION
  Report Type: Report from Study
  Country: US (occurrence: None)
  Receive Date: 20240822
  Receipt Date: 20240822
  Transmission Date: 20241016
  Serious: Yes (Other)
  Sender: ASTRAZENECA
  Company Number: 2022A326606

PATIENT
  Sex: Female
  Weight: 49 kg

DRUGS (1)
  1. SYMBICORT [Suspect]
     Active Substance: BUDESONIDE\FORMOTEROL FUMARATE DIHYDRATE
     Indication: Asthma
     Dosage: 160MCG/4.5MCG VIA INHALATION, 2 INHALATIONS TWICE DAILY
     Route: 055

REACTIONS (10)
  - International normalised ratio [Unknown]
  - Shoulder fracture [Unknown]
  - Fall [Unknown]
  - Blindness unilateral [Unknown]
  - Cataract [Unknown]
  - Cardiac disorder [Unknown]
  - Fibromyalgia [Unknown]
  - Dyspnoea [Unknown]
  - Asthma [Unknown]
  - Product dose omission issue [Unknown]
